FAERS Safety Report 5849329-0 (Version None)
Quarter: 2008Q3

REPORT INFORMATION
  Report Type: 
  Country: None (occurrence: None)
  Receive Date: 20080731
  Receipt Date: 20080601
  Transmission Date: 20090109
  Serious: No
  Sender: FDA-Public Use
  Company Number: US200806000313

PATIENT
  Age: 58 Year
  Sex: Female
  Weight: 128.3 kg

DRUGS (12)
  1. BYETTA [Suspect]
     Indication: GLUCOSE TOLERANCE IMPAIRED
     Dosage: 5 UG, 2/D, SUBCUTANEOUS
     Route: 058
     Dates: start: 20080501, end: 20080530
  2. CARTIA XT [Concomitant]
  3. DIOVAN HCT [Concomitant]
  4. PANTOPRAZOLE SODIUM [Concomitant]
  5. LEVOTHYROXINE SODIUM [Concomitant]
  6. CITROL /00582602/(CITALOPRAM HYDROBROMIDE) [Concomitant]
  7. VITAMIN C (ASCORRBIC ACID) [Concomitant]
  8. CALCIUM (CALCIUM) [Concomitant]
  9. FLAXSEED OIL (LINUM USITATISSIMUM SEED OIL) [Concomitant]
  10. VITAMIN B [Concomitant]
  11. ADVAIR (FLUTICASONE PROPIONATE, SALMETEROL XINAFOATE) INHALER [Concomitant]
  12. ALBUTEROL [Concomitant]

REACTIONS (4)
  - ARTHRALGIA [None]
  - HYPERSENSITIVITY [None]
  - INJECTION SITE HAEMATOMA [None]
  - INJECTION SITE URTICARIA [None]
